FAERS Safety Report 11145225 (Version 6)
Quarter: 2015Q3

REPORT INFORMATION
  Report Type: Spontaneous
  Country: US (occurrence: US)
  Receive Date: 20150526
  Receipt Date: 20150803
  Transmission Date: 20151125
  Serious: Yes (Other)
  Sender: FDA-Public Use
  Company Number: US-JNJFOC-20150514491

PATIENT
  Sex: Female
  Weight: 60.78 kg

DRUGS (4)
  1. ORTHO TRI CYCLEN [Concomitant]
     Active Substance: ETHINYL ESTRADIOL\NORGESTIMATE
     Indication: CONTRACEPTION
     Route: 065
  2. PENTASA [Concomitant]
     Active Substance: MESALAMINE
     Indication: CROHN^S DISEASE
     Route: 065
     Dates: start: 2013
  3. REMICADE [Suspect]
     Active Substance: INFLIXIMAB
     Indication: CROHN^S DISEASE
     Dosage: DOSE: 5MG/KG
     Route: 042
     Dates: start: 2007
  4. KLONOPIN [Concomitant]
     Active Substance: CLONAZEPAM
     Dosage: ONCE 12 (UNSPECIFIED)
     Route: 065
     Dates: start: 2013

REACTIONS (1)
  - Intraductal papilloma of breast [Unknown]
